FAERS Safety Report 5698071-8 (Version None)
Quarter: 2008Q2

REPORT INFORMATION
  Report Type: 
  Country: None (occurrence: None)
  Receive Date: 20080408
  Receipt Date: 20080325
  Transmission Date: 20081010
  Serious: Yes (Hospitalization)
  Sender: FDA-Public Use
  Company Number: US-ELI_LILLY_AND_COMPANY-US200803005570

PATIENT
  Sex: Male
  Weight: 101.59 kg

DRUGS (9)
  1. BYETTA [Suspect]
     Dosage: 5 UG, 2/D
     Route: 058
     Dates: start: 20060101, end: 20060101
  2. BYETTA [Suspect]
     Dosage: 10 UG, 2/D
     Route: 058
     Dates: start: 20060101, end: 20080318
  3. BYETTA [Suspect]
     Dosage: 10 UG, 2/D
     Route: 058
     Dates: start: 20080320
  4. METFORMIN HCL [Concomitant]
     Dosage: 500 MG, EACH MORNING
     Route: 048
     Dates: start: 20060101
  5. METFORMIN HCL [Concomitant]
     Dosage: 1000 MG, EACH EVENING
     Route: 048
  6. GLIPIZIDE [Concomitant]
     Dosage: 2 MG, 2/D
     Route: 048
  7. RAMIPRIL [Concomitant]
     Indication: HYPERTENSION
     Dosage: 10 MG, DAILY (1/D)
     Route: 048
  8. ASPIRIN [Concomitant]
     Dosage: 81 MG, DAILY (1/D)
     Route: 048
  9. HERBAL PREPARATION [Concomitant]
     Indication: BLOOD CHOLESTEROL

REACTIONS (5)
  - ABDOMINAL PAIN UPPER [None]
  - BLOOD PRESSURE INCREASED [None]
  - CHEST PAIN [None]
  - CORONARY ARTERY STENOSIS [None]
  - PANCREATITIS [None]
